FAERS Safety Report 11181181 (Version 1)
Quarter: 2015Q2

REPORT INFORMATION
  Report Type: Spontaneous
  Country: JP (occurrence: JP)
  Receive Date: 20150611
  Receipt Date: 20150611
  Transmission Date: 20150821
  Serious: Yes (Hospitalization, Other)
  Sender: FDA-Public Use
  Company Number: JP-ASTRAZENECA-2015SE56623

PATIENT
  Age: 70 Year

DRUGS (3)
  1. BENZALIN [Suspect]
     Active Substance: NITRAZEPAM
     Route: 065
  2. SEROQUEL [Suspect]
     Active Substance: QUETIAPINE FUMARATE
     Indication: SCHIZOPHRENIA
     Route: 048
  3. INVEGA [Suspect]
     Active Substance: PALIPERIDONE
     Route: 065

REACTIONS (3)
  - Gait disturbance [Unknown]
  - Syncope [Unknown]
  - Pulmonary hypertension [Unknown]

NARRATIVE: CASE EVENT DATE: 2015
